FAERS Safety Report 10541521 (Version 3)
Quarter: 2015Q1

REPORT INFORMATION
  Report Type: Spontaneous
  Country: CH (occurrence: CH)
  Receive Date: 20141024
  Receipt Date: 20150114
  Transmission Date: 20150720
  Serious: Yes (Life-Threatening, Disabling, Other)
  Sender: FDA-Public Use
  Company Number: PHHY2014CH133604

PATIENT
  Age: 50 Year
  Sex: Female

DRUGS (1)
  1. TASIGNA [Suspect]
     Active Substance: NILOTINIB
     Indication: CHRONIC MYELOID LEUKAEMIA
     Dosage: 300 MG, BID
     Route: 065
     Dates: start: 20140702, end: 20140818

REACTIONS (4)
  - General physical health deterioration [Unknown]
  - Visual acuity reduced [Unknown]
  - Blindness [Not Recovered/Not Resolved]
  - Creutzfeldt-Jakob disease [Not Recovered/Not Resolved]
